FAERS Safety Report 10018407 (Version 1)
Quarter: 2014Q1

REPORT INFORMATION
  Report Type: Report from Study
  Country: US (occurrence: US)
  Receive Date: 20140318
  Receipt Date: 20140318
  Transmission Date: 20141002
  Serious: Yes (Death, Hospitalization, Other)
  Sender: FDA-Public Use
  Company Number: US-ALEXION PHARMACEUTICALS INC.-A201202983

PATIENT
  Sex: Female

DRUGS (3)
  1. SOLIRIS [Suspect]
     Indication: PAROXYSMAL NOCTURNAL HAEMOGLOBINURIA
     Dosage: UNK
     Route: 042
     Dates: start: 20121025
  2. SOLIRIS [Suspect]
     Dosage: UNK
     Route: 042
     Dates: start: 20121115, end: 20121115
  3. SOLIRIS [Suspect]
     Dosage: UNK
     Route: 042
     Dates: start: 20121129, end: 20121129

REACTIONS (5)
  - Chronic obstructive pulmonary disease [Fatal]
  - Unevaluable event [Unknown]
  - Pneumonia [Unknown]
  - Leukaemia [Unknown]
  - Haemoglobin decreased [Unknown]
